FAERS Safety Report 6532372-6 (Version None)
Quarter: 2010Q1

REPORT INFORMATION
  Report Type: 
  Country: None (occurrence: None)
  Receive Date: 20100108
  Receipt Date: 20091231
  Transmission Date: 20100710
  Serious: Yes (Other)
  Sender: FDA-Public Use
  Company Number: US-ABBOTT-10P-163-0617246-00

PATIENT
  Sex: Female
  Weight: 47.67 kg

DRUGS (1)
  1. SURBEX T [Suspect]
     Indication: VITAMIN SUPPLEMENTATION
     Dates: start: 19590101, end: 20091201

REACTIONS (2)
  - FATIGUE [None]
  - THROAT CANCER [None]
